FAERS Safety Report 22980477 (Version 2)
Quarter: 2023Q4

REPORT INFORMATION
  Report Type: Spontaneous
  Country: US (occurrence: US)
  Receive Date: 20230925
  Receipt Date: 20231207
  Transmission Date: 20240109
  Serious: Yes (Other)
  Sender: FDA-Public Use
  Company Number: US-PFIZER INC-PV202300101115

PATIENT
  Age: 68 Year
  Sex: Female
  Weight: 90.703 kg

DRUGS (2)
  1. XELJANZ XR [Suspect]
     Active Substance: TOFACITINIB CITRATE
     Indication: Rheumatoid arthritis
     Dosage: 11 MG, 1X/DAY (5 OR 6 YEARS AGO)
  2. METHOTREXATE [Concomitant]
     Active Substance: METHOTREXATE
     Dosage: UNK
     Dates: start: 2013

REACTIONS (4)
  - Cystitis [Unknown]
  - Mental impairment [Unknown]
  - Weight increased [Unknown]
  - Nervousness [Unknown]
